FAERS Safety Report 5149883-0 (Version None)
Quarter: 2006Q4

REPORT INFORMATION
  Report Type: 
  Country: None (occurrence: None)
  Receive Date: 20061108
  Receipt Date: 20061026
  Transmission Date: 20070319
  Serious: Yes (Other)
  Sender: FDA-Public Use
  Company Number: 2006134317

PATIENT
  Age: 73 Year
  Sex: Female

DRUGS (3)
  1. CELECOXIB (CELECOXIB) [Suspect]
  2. BEXTRA [Suspect]
  3. VIOXX [Suspect]
     Dates: start: 20000301, end: 20000901

REACTIONS (2)
  - ISCHAEMIC STROKE [None]
  - UROSEPSIS [None]
